FAERS Safety Report 9660345 (Version 1)
Quarter: 2013Q4

REPORT INFORMATION
  Report Type: Spontaneous
  Country: US (occurrence: US)
  Receive Date: 20131031
  Receipt Date: 20131031
  Transmission Date: 20140711
  Serious: No
  Sender: FDA-Public Use
  Company Number: US-PURDUE-USA-2011-0074035

PATIENT
  Sex: Female
  Weight: 48.53 kg

DRUGS (21)
  1. OXYCONTIN TABLETS [Suspect]
     Indication: INTERVERTEBRAL DISC DEGENERATION
  2. OXYCONTIN TABLETS [Suspect]
     Indication: BACK PAIN
  3. OXYCONTIN TABLETS [Suspect]
     Indication: OSTEOPOROSIS
  4. OXYCONTIN TABLETS [Suspect]
     Indication: RHEUMATOID ARTHRITIS
  5. OXYCONTIN TABLETS [Suspect]
     Indication: BACK PAIN
  6. PREDNISONE [Suspect]
     Indication: SYSTEMIC LUPUS ERYTHEMATOSUS
  7. PREDNISONE [Suspect]
     Indication: AUTOIMMUNE DISORDER
  8. PREDNISONE [Suspect]
     Indication: RHEUMATOID ARTHRITIS
  9. FOLIC ACID [Concomitant]
     Indication: ANAEMIA
  10. PREMARIN [Concomitant]
     Indication: OSTEOPOROSIS
  11. PROPRANOLOL [Concomitant]
  12. VITAMIN C                          /00008001/ [Concomitant]
  13. ROXICODONE [Concomitant]
     Indication: BREAKTHROUGH PAIN
  14. DIAZEPAM [Concomitant]
     Indication: ANXIETY
  15. DIAZEPAM [Concomitant]
     Indication: MUSCLE SPASMS
  16. ROBAXIN [Concomitant]
     Indication: MUSCLE SPASMS
  17. SUMATRIPTAN [Concomitant]
     Indication: MIGRAINE
  18. LASIX                              /00032601/ [Concomitant]
  19. COMPAZINE                          /00013302/ [Concomitant]
     Indication: NAUSEA
  20. NYSTATIN [Concomitant]
     Indication: CANDIDA INFECTION
  21. POTASSIUM CHLORIDE [Concomitant]
     Indication: ELECTROLYTE SUBSTITUTION THERAPY

REACTIONS (4)
  - Arthritis [Unknown]
  - Neuralgia [Unknown]
  - Fatigue [Unknown]
  - Constipation [Unknown]
